FAERS Safety Report 18054306 (Version 1)
Quarter: 2020Q3

REPORT INFORMATION
  Report Type: Spontaneous
  Country: US (occurrence: US)
  Receive Date: 20200721
  Receipt Date: 20200721
  Transmission Date: 20201103
  Serious: Yes (Congenital Anomaly)
  Sender: FDA-Public Use
  Company Number: None

PATIENT
  Age: 72 Year
  Sex: Male
  Weight: 70.31 kg

DRUGS (2)
  1. DAPSONE (DAPSONE 100MG TAB) [Suspect]
     Active Substance: DAPSONE
     Indication: GLUCOSE-6-PHOSPHATE DEHYDROGENASE DEFICIENCY
  2. DAPSONE (DAPSONE 100MG TAB) [Suspect]
     Active Substance: DAPSONE
     Indication: HAEMOLYTIC ANAEMIA
     Route: 048
     Dates: start: 20181121, end: 20190116

REACTIONS (2)
  - Disease progression [None]
  - Haemolytic anaemia [None]

NARRATIVE: CASE EVENT DATE: 20190116
